FAERS Safety Report 10396062 (Version 11)
Quarter: 2015Q1

REPORT INFORMATION
  Report Type: Report from Study
  Country: US (occurrence: US)
  Receive Date: 20140820
  Receipt Date: 20150323
  Transmission Date: 20150720
  Serious: Yes (Other)
  Sender: FDA-Public Use
  Company Number: US-009507513-1408USA008524

PATIENT
  Age: 70 Year
  Sex: Male
  Weight: 79.9 kg

DRUGS (81)
  1. POSACONAZOLE [Suspect]
     Active Substance: POSACONAZOLE
     Dosage: TOTAL DOSE: 185, (UNITS UNSPECIFIED)
     Route: 042
     Dates: start: 20140731, end: 20140801
  2. POTASSIUM PHOSPHATE, DIBASIC [Concomitant]
     Active Substance: POTASSIUM PHOSPHATE, DIBASIC
     Dosage: 30 MMOL, ONCE
     Route: 042
     Dates: start: 20140728, end: 20140728
  3. CLONAZEPAM. [Concomitant]
     Active Substance: CLONAZEPAM
     Dosage: 0.25 MG, TID
     Route: 048
     Dates: start: 20140802, end: 20140802
  4. TIGECYCLINE [Concomitant]
     Active Substance: TIGECYCLINE
     Indication: INFECTION
     Dosage: 100 MG, ONCE
     Route: 042
     Dates: start: 20140727, end: 20140727
  5. VORICONAZOLE. [Concomitant]
     Active Substance: VORICONAZOLE
     Indication: PNEUMONIA FUNGAL
     Dosage: 300 MG, QD
     Route: 042
     Dates: start: 20140729, end: 20140730
  6. DIPHENHYDRAMINE [Concomitant]
     Active Substance: DIPHENHYDRAMINE
     Indication: HYPERSENSITIVITY
     Dosage: TOTAL DAILY DOSE: 50 MG, PRN
     Route: 042
     Dates: start: 20140802, end: 20140802
  7. METOPROLOL [Concomitant]
     Active Substance: METOPROLOL
     Indication: HYPERTENSION
     Dosage: 12.5 MG, BID
     Route: 048
     Dates: start: 20140804, end: 20140816
  8. SODIUM CHLORIDE. [Concomitant]
     Active Substance: SODIUM CHLORIDE
     Indication: FLUID REPLACEMENT
     Dosage: 250 ML, ONCE
     Route: 042
     Dates: start: 20140805, end: 20140805
  9. POMALIDOMIDE [Concomitant]
     Active Substance: POMALIDOMIDE
     Indication: PLASMA CELL MYELOMA
     Dosage: 4 MG, ONCE
     Route: 042
     Dates: start: 20140804, end: 20140808
  10. HYDROCORTISONE. [Concomitant]
     Active Substance: HYDROCORTISONE
     Indication: PLASMA CELL MYELOMA
     Dosage: 75 MG, ONCE
     Route: 042
     Dates: start: 20140807, end: 20140807
  11. MEROPENEM. [Concomitant]
     Active Substance: MEROPENEM
     Indication: INFECTION
     Dosage: 1 G, TID
     Route: 042
     Dates: start: 20140718, end: 20140801
  12. VANCOMYCIN [Concomitant]
     Active Substance: VANCOMYCIN
     Indication: CLOSTRIDIUM DIFFICILE INFECTION
     Dosage: 125 MG, QID
     Route: 048
     Dates: start: 20140721, end: 20140814
  13. PROMETHAZINE [Concomitant]
     Active Substance: PROMETHAZINE\PROMETHAZINE HYDROCHLORIDE
     Indication: NAUSEA
     Dosage: 25 MG, BID
     Route: 042
     Dates: start: 20140723, end: 20140730
  14. PROMETHAZINE [Concomitant]
     Active Substance: PROMETHAZINE\PROMETHAZINE HYDROCHLORIDE
     Indication: VOMITING
  15. MAGNESIUM SULFATE. [Concomitant]
     Active Substance: MAGNESIUM SULFATE
     Dosage: 2 G, ONCE
     Route: 042
     Dates: start: 20140731, end: 20140801
  16. MAGNESIUM SULFATE. [Concomitant]
     Active Substance: MAGNESIUM SULFATE
     Dosage: TOTAL DAILY DOSE: 2G, PRN
     Route: 042
     Dates: start: 20140803, end: 20140804
  17. POTASSIUM PHOSPHATE, DIBASIC [Concomitant]
     Active Substance: POTASSIUM PHOSPHATE, DIBASIC
     Indication: MINERAL SUPPLEMENTATION
     Dosage: 30 MMOL, ONCE
     Route: 042
     Dates: start: 20140724, end: 20140724
  18. DIPHENHYDRAMINE [Concomitant]
     Active Substance: DIPHENHYDRAMINE
     Indication: HYPERSENSITIVITY
     Dosage: 25 MG, ONCE
     Route: 042
     Dates: start: 20140724, end: 20140724
  19. BACTRIM [Concomitant]
     Active Substance: SULFAMETHOXAZOLE\TRIMETHOPRIM
     Indication: INFECTION
     Dosage: 2 TABLET, TID
     Route: 048
     Dates: start: 20140801, end: 20140801
  20. POSACONAZOLE [Suspect]
     Active Substance: POSACONAZOLE
     Indication: ASPERGILLUS INFECTION
     Dosage: TOTAL DOSE: 184.4, (UNITS UNSPECIFIED)
     Route: 042
     Dates: start: 20140730, end: 20140730
  21. POSACONAZOLE [Suspect]
     Active Substance: POSACONAZOLE
     Dosage: TOTAL DOSE: 180, (UNITS UNSPECIFIED)
     Route: 042
     Dates: start: 20140731, end: 20140731
  22. DEXAMETHASONE. [Concomitant]
     Active Substance: DEXAMETHASONE
     Indication: PLASMA CELL MYELOMA
     Dosage: 20 MG, ONCE
     Route: 042
     Dates: start: 20140804, end: 20140805
  23. PANTOPRAZOLE [Concomitant]
     Active Substance: PANTOPRAZOLE SODIUM
     Indication: GASTRIC PH INCREASED
     Dosage: 40 MG, QD
     Route: 048
     Dates: start: 20140723, end: 20140816
  24. POTASSIUM CHLORIDE. [Concomitant]
     Active Substance: POTASSIUM CHLORIDE
     Dosage: 40 MEQ, ONCE
     Route: 042
     Dates: start: 20140731, end: 20140731
  25. POTASSIUM CHLORIDE. [Concomitant]
     Active Substance: POTASSIUM CHLORIDE
     Dosage: 40 MEQ, ONCE
     Route: 042
     Dates: start: 20140804, end: 20140804
  26. CLONAZEPAM. [Concomitant]
     Active Substance: CLONAZEPAM
     Dosage: 0.25 MG, TID
     Route: 048
     Dates: start: 20140805, end: 20140805
  27. ACETAMINOPHEN. [Concomitant]
     Active Substance: ACETAMINOPHEN
     Indication: PYREXIA
  28. TEMAZEPAM. [Concomitant]
     Active Substance: TEMAZEPAM
     Indication: INSOMNIA
     Dosage: TOAL DAILY DOSE: 15 MG, PRN
     Route: 048
     Dates: start: 20140729, end: 20140729
  29. TIGECYCLINE [Concomitant]
     Active Substance: TIGECYCLINE
     Dosage: 100 MG, ONCE
     Route: 042
     Dates: start: 20140802, end: 20140802
  30. CEFTAZIDIME. [Concomitant]
     Active Substance: CEFTAZIDIME
     Indication: INFECTION
     Dosage: 2 MG, TID
     Route: 042
     Dates: start: 20140801, end: 20140804
  31. MARINOL [Concomitant]
     Active Substance: DRONABINOL
     Indication: INCREASED APPETITE
     Dosage: 2.5 MG, BID
     Route: 048
     Dates: start: 20140802, end: 20140813
  32. ONDANSETRON [Concomitant]
     Active Substance: ONDANSETRON
     Indication: VOMITING
  33. POSACONAZOLE [Suspect]
     Active Substance: POSACONAZOLE
     Dosage: DOSE REPORTED AS 3, UNITS NOT PROVIDED
     Route: 048
     Dates: start: 20140809, end: 20140812
  34. CARFILZOMIB [Concomitant]
     Active Substance: CARFILZOMIB
     Indication: PLASMA CELL MYELOMA
     Dosage: 41.2 MG, ONCE
     Route: 042
     Dates: start: 20140804, end: 20140805
  35. SODIUM CHLORIDE. [Concomitant]
     Active Substance: SODIUM CHLORIDE
     Indication: FLUID REPLACEMENT
     Dosage: 500 ML, QD
     Route: 042
     Dates: start: 20140723, end: 20140726
  36. SODIUM CHLORIDE. [Concomitant]
     Active Substance: SODIUM CHLORIDE
     Indication: FLUID REPLACEMENT
     Dosage: 10 ML, BID
     Route: 042
     Dates: start: 20140723, end: 20140903
  37. VALACYCLOVIR HYDROCHLORIDE. [Concomitant]
     Active Substance: VALACYCLOVIR HYDROCHLORIDE
     Indication: PROPHYLAXIS
     Dosage: 500 MG, QD
     Route: 048
     Dates: start: 20140709, end: 20140806
  38. ONDANSETRON [Concomitant]
     Active Substance: ONDANSETRON
     Indication: NAUSEA
  39. SODIUM CHLORIDE. [Concomitant]
     Active Substance: SODIUM CHLORIDE
     Indication: FLUID REPLACEMENT
     Dosage: TOTAL DAILY DOSE: 500 ML, CONTINUOUS
     Route: 042
     Dates: start: 20140727, end: 20140812
  40. VORICONAZOLE. [Concomitant]
     Active Substance: VORICONAZOLE
     Indication: PNEUMONIA FUNGAL
     Dosage: 400 MG, QD
     Route: 042
     Dates: start: 20140728, end: 20140729
  41. LORAZEPAM. [Concomitant]
     Active Substance: LORAZEPAM
     Indication: ADJUSTMENT DISORDER WITH ANXIETY
     Dosage: TOTAL DAILY DOSE: 2 MG, PRN
     Route: 042
     Dates: start: 20140802, end: 20140802
  42. PROMETHAZINE [Concomitant]
     Active Substance: PROMETHAZINE\PROMETHAZINE HYDROCHLORIDE
     Indication: NAUSEA
  43. ZYVOX [Concomitant]
     Active Substance: LINEZOLID
     Indication: INFECTION
     Dosage: 600 MG, BID
     Route: 042
     Dates: start: 20140720, end: 20140802
  44. OXYCODONE [Concomitant]
     Active Substance: OXYCODONE
     Dosage: TOTAL DAILY DOSE: 30 MG, PRN
     Route: 048
     Dates: start: 20140805, end: 20140808
  45. CLONAZEPAM. [Concomitant]
     Active Substance: CLONAZEPAM
     Dosage: 0.25 MG, TID
     Route: 048
     Dates: start: 20140728, end: 20140730
  46. CLONAZEPAM. [Concomitant]
     Active Substance: CLONAZEPAM
     Indication: ADJUSTMENT DISORDER WITH ANXIETY
     Dosage: 2 MG, PRN
     Route: 048
     Dates: start: 20140805, end: 20140805
  47. ATORVASTATIN [Concomitant]
     Active Substance: ATORVASTATIN
     Indication: LIPIDS INCREASED
     Dosage: 80 MG, QD
     Route: 048
     Dates: start: 20140803, end: 20140803
  48. LEVOTHYROXINE SODIUM. [Concomitant]
     Active Substance: LEVOTHYROXINE SODIUM
     Indication: HYPOTHYROIDISM
     Dosage: 0.05 MG, QD
     Route: 048
     Dates: start: 20140723, end: 20140817
  49. FILGRASTIM [Concomitant]
     Active Substance: FILGRASTIM
     Indication: NEUTROPENIA
     Dosage: 0.48 MG, BID
     Route: 058
     Dates: start: 20140723, end: 20140804
  50. OXYCODONE [Concomitant]
     Active Substance: OXYCODONE
     Indication: PAIN MANAGEMENT
     Dosage: TOTAL DAILY DOSE: 30 MG, PRN
     Route: 048
     Dates: start: 20140723, end: 20140726
  51. ACETAMINOPHEN. [Concomitant]
     Active Substance: ACETAMINOPHEN
     Indication: ANALGESIC THERAPY
     Dosage: 650 MG, QD
     Route: 048
     Dates: start: 20140724, end: 20140724
  52. ACETAMINOPHEN. [Concomitant]
     Active Substance: ACETAMINOPHEN
     Indication: PYREXIA
  53. POTASSIUM CHLORIDE. [Concomitant]
     Active Substance: POTASSIUM CHLORIDE
     Indication: ELECTROLYTE SUBSTITUTION THERAPY
     Dosage: TOTAL DAILY DSOE: 40 MEQ, PRN
     Route: 042
     Dates: start: 20140725, end: 20140725
  54. CLONAZEPAM. [Concomitant]
     Active Substance: CLONAZEPAM
     Indication: ANXIETY
     Dosage: 0.25 MG, TID
     Route: 048
     Dates: start: 20140725, end: 20140726
  55. SODIUM PHOSPHATE, DIBASIC [Concomitant]
     Active Substance: SODIUM PHOSPHATE, DIBASIC
     Indication: ELECTROLYTE SUBSTITUTION THERAPY
     Dosage: TOTAL DAILY DOSE: 21 MMOL, PRN
     Route: 042
     Dates: start: 20140726, end: 20140727
  56. TEMAZEPAM. [Concomitant]
     Active Substance: TEMAZEPAM
     Indication: ANXIETY
     Dosage: TOAL DAILY DOSE: 15 MG, PRN
     Route: 048
     Dates: start: 20140727, end: 20140727
  57. SODIUM PHOSPHATE, DIBASIC [Concomitant]
     Active Substance: SODIUM PHOSPHATE, DIBASIC
     Indication: ELECTROLYTE SUBSTITUTION THERAPY
     Dosage: 30 MMOL, QD
     Route: 042
     Dates: start: 20140801, end: 20140801
  58. PROMETHAZINE [Concomitant]
     Active Substance: PROMETHAZINE\PROMETHAZINE HYDROCHLORIDE
     Indication: PAIN MANAGEMENT
     Dosage: TOTAL DAILY DOSE 37.5 MG, PRN
     Route: 042
     Dates: start: 20140806, end: 20140808
  59. ONDANSETRON [Concomitant]
     Active Substance: ONDANSETRON
     Indication: NAUSEA
     Dosage: TOTAL DAILY DOSE: 16 MG, PRN
     Route: 042
     Dates: start: 20140804, end: 20140805
  60. POSACONAZOLE [Suspect]
     Active Substance: POSACONAZOLE
     Dosage: TOTAL DOSE: 140, (UNITS UNSPECIFIED)
     Route: 042
     Dates: start: 20140801, end: 20140801
  61. CALCIUM CARBONATE (+) VITAMIN D (UNSPECIFIED) [Concomitant]
     Active Substance: CALCIUM CARBONATE\VITAMIN D
     Indication: NUTRITIONAL SUPPLEMENTATION
     Dosage: 1 TABLET, QD
     Route: 048
     Dates: start: 20140723, end: 20140806
  62. ONDANSETRON [Concomitant]
     Active Substance: ONDANSETRON
     Indication: VOMITING
     Dosage: 8 MG, BID
     Route: 042
     Dates: start: 20140723, end: 20140803
  63. METRONIDAZOLE. [Concomitant]
     Active Substance: METRONIDAZOLE
     Indication: INFECTION
     Dosage: 500 MG, TID
     Route: 042
     Dates: start: 20140723, end: 20140724
  64. OXYCODONE [Concomitant]
     Active Substance: OXYCODONE
     Dosage: TOTAL DAILY DOSE: 30 MG, PRN
     Route: 048
     Dates: start: 20140728, end: 20140729
  65. MAGNESIUM SULFATE. [Concomitant]
     Active Substance: MAGNESIUM SULFATE
     Dosage: 2 G, ONCE
     Route: 042
     Dates: start: 20140806, end: 20140806
  66. ACETAMINOPHEN. [Concomitant]
     Active Substance: ACETAMINOPHEN
     Indication: PAIN
     Dosage: 325 MG, ONCE
     Route: 048
     Dates: start: 20140726, end: 20140726
  67. HYDROCORTISYL [Concomitant]
     Indication: ANTIINFLAMMATORY THERAPY
     Dosage: 50 MG, QD
     Route: 042
     Dates: start: 20140802, end: 20140803
  68. TIGECYCLINE [Concomitant]
     Active Substance: TIGECYCLINE
     Indication: INFECTION
     Dosage: 60 MG, BID
     Route: 042
     Dates: start: 20140803, end: 20140816
  69. POSACONAZOLE [Suspect]
     Active Substance: POSACONAZOLE
     Indication: ASPERGILLUS INFECTION
     Dosage: DOSE REPORTED AS 3 (UNITS NOT PROVIDED)
     Route: 048
     Dates: start: 20140804, end: 20140807
  70. CASPOFUNGIN ACETATE [Concomitant]
     Active Substance: CASPOFUNGIN ACETATE
     Indication: FUNGAL INFECTION
     Dosage: 50 MG, QD
     Route: 042
     Dates: start: 20140719, end: 20140727
  71. OXYCONTIN [Concomitant]
     Active Substance: OXYCODONE HYDROCHLORIDE
     Indication: PAIN
     Dosage: 20 MG, BID
     Route: 048
     Dates: start: 20140623, end: 20140813
  72. ALTEPLASE [Concomitant]
     Active Substance: ALTEPLASE
     Indication: COAGULOPATHY
     Dosage: 1SYRINGE, ONCE
     Route: 042
     Dates: start: 20140731, end: 20140731
  73. MAGNESIUM SULFATE. [Concomitant]
     Active Substance: MAGNESIUM SULFATE
     Indication: MINERAL SUPPLEMENTATION
     Dosage: 2 G, ONCE
     Route: 042
     Dates: start: 20140725, end: 20140725
  74. MAGNESIUM SULFATE. [Concomitant]
     Active Substance: MAGNESIUM SULFATE
     Dosage: 2 G, ONCE
     Route: 042
     Dates: start: 20140728, end: 20140728
  75. POTASSIUM PHOSPHATE, DIBASIC [Concomitant]
     Active Substance: POTASSIUM PHOSPHATE, DIBASIC
     Dosage: TOTAL DAILY DOSE: 30 MMOL, PRN
     Route: 042
     Dates: start: 20140803, end: 20140804
  76. POTASSIUM CHLORIDE. [Concomitant]
     Active Substance: POTASSIUM CHLORIDE
     Dosage: TOTAL DAILY DSOE: 40 MEQ, PRN
     Route: 042
     Dates: start: 20140802, end: 20140802
  77. TIGECYCLINE [Concomitant]
     Active Substance: TIGECYCLINE
     Indication: INFECTION
     Dosage: 50 MG, BID
     Route: 042
     Dates: start: 20140728, end: 20140729
  78. CLONAZEPAM. [Concomitant]
     Active Substance: CLONAZEPAM
     Indication: ANXIETY
     Dosage: 0.5 MG, QD
     Route: 048
     Dates: start: 20140728, end: 20140728
  79. AMIKACIN [Concomitant]
     Active Substance: AMIKACIN
     Indication: INFECTION
     Dosage: 1200 MG, ONCE
     Route: 042
     Dates: start: 20140802, end: 20140802
  80. CALCIUM GLUCONATE. [Concomitant]
     Active Substance: CALCIUM GLUCONATE
     Indication: NUTRITIONAL SUPPLEMENTATION
     Dosage: 2 G, ONCE
     Route: 042
     Dates: start: 20140806, end: 20140806
  81. HYDROCORTISONE. [Concomitant]
     Active Substance: HYDROCORTISONE
     Indication: ANTIINFLAMMATORY THERAPY
     Dosage: 75 MG, ONCE
     Route: 042
     Dates: start: 20140807, end: 20140807

REACTIONS (1)
  - Transient ischaemic attack [Recovered/Resolved]

NARRATIVE: CASE EVENT DATE: 20140807
